FAERS Safety Report 6892089-5 (Version None)
Quarter: 2010Q3

REPORT INFORMATION
  Report Type: 
  Country: None (occurrence: None)
  Receive Date: 20100731
  Receipt Date: 20080212
  Transmission Date: 20110219
  Serious: No
  Sender: FDA-Public Use
  Company Number: US-PFIZER INC-2008011568

PATIENT
  Sex: Male
  Weight: 79.5 kg

DRUGS (10)
  1. CAVERJECT [Suspect]
     Indication: ERECTILE DYSFUNCTION
  2. VIAGRA [Suspect]
     Indication: ERECTILE DYSFUNCTION
  3. CAVERJECT [Suspect]
     Dates: start: 20080101
  4. BENAZEPRIL HYDROCHLORIDE [Concomitant]
  5. CRESTOR [Concomitant]
  6. NABUMETONE [Concomitant]
  7. BUPROPION [Concomitant]
  8. ACETYLSALICYLIC ACID SRT [Concomitant]
  9. ALL OTHER THERAPEUTIC PRODUCTS [Concomitant]
  10. MULTI-VITAMINS [Concomitant]

REACTIONS (3)
  - DEVICE MALFUNCTION [None]
  - DRUG INEFFECTIVE [None]
  - STRESS [None]
